FAERS Safety Report 8000889-3 (Version None)
Quarter: 2011Q4

REPORT INFORMATION
  Report Type: 
  Country: None (occurrence: None)
  Receive Date: 20111214
  Receipt Date: 20111128
  Transmission Date: 20120403
  Serious: Yes (Other)
  Sender: FDA-Public Use
  Company Number: THQ2011A07925

PATIENT
  Age: 75 Year
  Sex: Female

DRUGS (1)
  1. ACTOS [Suspect]
     Indication: TYPE 2 DIABETES MELLITUS
     Dosage: 30 MG (1 D) PER ORAL
     Route: 048
     Dates: start: 20060107, end: 20110823

REACTIONS (2)
  - LUMBAR VERTEBRAL FRACTURE [None]
  - HUMERUS FRACTURE [None]
